FAERS Safety Report 6375987-0 (Version None)
Quarter: 2009Q3

REPORT INFORMATION
  Report Type: 
  Country: None (occurrence: None)
  Receive Date: 20090921
  Receipt Date: 20090907
  Transmission Date: 20100115
  Serious: Yes (Hospitalization)
  Sender: FDA-Public Use
  Company Number: 2009AL005911

PATIENT
  Age: 54 Year
  Sex: Male

DRUGS (3)
  1. VINORELBINE [Suspect]
  2. CISPLATIN [Concomitant]
  3. CETUXIMAB [Concomitant]

REACTIONS (1)
  - NEUTROPENIC SEPSIS [None]
